FAERS Safety Report 19964651 (Version 2)
Quarter: 2021Q4

REPORT INFORMATION
  Report Type: Spontaneous
  Country: CN (occurrence: CN)
  Receive Date: 20211018
  Receipt Date: 20211026
  Transmission Date: 20220304
  Serious: Yes (Hospitalization)
  Sender: FDA-Public Use
  Company Number: CN-ELI_LILLY_AND_COMPANY-CN201810001641

PATIENT
  Age: 82 Year
  Sex: Female
  Weight: 77 kg

DRUGS (4)
  1. HUMALOG [Suspect]
     Active Substance: INSULIN LISPRO
     Indication: Diabetes mellitus
     Dosage: 18-20 IU, EACH MORNING
     Route: 058
     Dates: end: 20180930
  2. HUMALOG [Suspect]
     Active Substance: INSULIN LISPRO
     Dosage: 16-18 IU, EACH EVENING
     Route: 058
     Dates: end: 20180930
  3. HUMALOG MIX75/25 [Suspect]
     Active Substance: INSULIN LISPRO
     Indication: Diabetes mellitus
     Dosage: 22 INTERNATIONAL UNIT, BID
     Route: 058
     Dates: start: 2001
  4. GLUCOBAY [Concomitant]
     Active Substance: ACARBOSE
     Indication: Product used for unknown indication
     Dosage: UNK

REACTIONS (7)
  - Fall [Unknown]
  - Hand fracture [Unknown]
  - Blood glucose abnormal [Unknown]
  - Vision blurred [Unknown]
  - Underdose [Unknown]
  - Product dose omission issue [Unknown]
  - Blood glucose increased [Unknown]

NARRATIVE: CASE EVENT DATE: 20180929
